FAERS Safety Report 10238918 (Version 1)
Quarter: 2014Q2

REPORT INFORMATION
  Report Type: Spontaneous
  Country: US (occurrence: None)
  Receive Date: 20140613
  Receipt Date: 20140613
  Transmission Date: 20141212
  Serious: No
  Sender: FDA-Public Use
  Company Number: None

PATIENT
  Age: 82 Year
  Sex: Male
  Weight: 49.9 kg

DRUGS (1)
  1. SEROQUIL 25MG [Suspect]
     Indication: DEMENTIA ALZHEIMER^S TYPE
     Dates: start: 20140606, end: 20140609

REACTIONS (4)
  - Hallucination [None]
  - Aggression [None]
  - Product substitution issue [None]
  - Therapeutic response changed [None]
